FAERS Safety Report 9348401 (Version 1)
Quarter: 2013Q2

REPORT INFORMATION
  Report Type: Spontaneous
  Country: US (occurrence: None)
  Receive Date: 20130613
  Receipt Date: 20130613
  Transmission Date: 20140414
  Serious: Yes (Life-Threatening)
  Sender: FDA-Public Use
  Company Number: None

PATIENT
  Age: 95 Year
  Sex: Male
  Weight: 65.77 kg

DRUGS (1)
  1. BENICAR [Suspect]
     Indication: BLOOD PRESSURE ABNORMAL
     Dates: start: 2007, end: 2013

REACTIONS (1)
  - Lung neoplasm malignant [None]
